FAERS Safety Report 9439381 (Version 4)
Quarter: 2013Q4

REPORT INFORMATION
  Report Type: Spontaneous
  Country: US (occurrence: US)
  Receive Date: 20130805
  Receipt Date: 20131118
  Transmission Date: 20140711
  Serious: Yes (Hospitalization, Other)
  Sender: FDA-Public Use
  Company Number: US-BIOGENIDEC-165131

PATIENT
  Age: 50 Year
  Sex: Female
  Weight: 53 kg

DRUGS (11)
  1. AVONEX [Suspect]
     Indication: MULTIPLE SCLEROSIS
     Route: 030
     Dates: start: 19991006, end: 2003
  2. AVONEX [Suspect]
     Indication: MULTIPLE SCLEROSIS
     Route: 030
     Dates: start: 2003, end: 200710
  3. AVONEX [Suspect]
     Indication: MULTIPLE SCLEROSIS
     Route: 030
     Dates: end: 20071102
  4. AMPYRA [Concomitant]
  5. ASPIRIN [Concomitant]
  6. B COMPLEX [Concomitant]
  7. CARTIA XT [Concomitant]
  8. CENTRUM SILVER [Concomitant]
  9. VITAMIN C [Concomitant]
  10. OXYBUTYNIN CHOLRIDE [Concomitant]
     Indication: HYPERTONIC BLADDER
  11. COPAXONE [Concomitant]
     Dates: start: 2006

REACTIONS (7)
  - Squamous cell carcinoma [Unknown]
  - Invasive ductal breast carcinoma [Recovered/Resolved]
  - Basal cell carcinoma [Recovered/Resolved]
  - Multiple sclerosis relapse [Recovered/Resolved]
  - Headache [Recovered/Resolved]
  - Skin cancer [Not Recovered/Not Resolved]
  - Hypoaesthesia [Unknown]
